FAERS Safety Report 6106029-X (Version None)
Quarter: 2009Q1

REPORT INFORMATION
  Report Type: 
  Country: None (occurrence: None)
  Receive Date: 20090306
  Receipt Date: 20090223
  Transmission Date: 20090719
  Serious: Yes (Death, Hospitalization, Disabling)
  Sender: FDA-Public Use
  Company Number: FR-ROCHE-505243

PATIENT
  Sex: Male

DRUGS (12)
  1. CAPECITABINE [Suspect]
     Indication: METASTATIC GASTRIC CANCER
     Dosage: GIVEN FROM DAY 2 TO 15 OF EACH 21-DAY-CYCLE.
     Route: 048
     Dates: start: 20060315, end: 20060319
  2. FARMORUBICIN [Suspect]
     Indication: METASTATIC GASTRIC CANCER
     Dosage: GIVEN IN 45CC OF NACL 0.9 % IN 15 MINUTES INFUSION ON DAY ONE OF EACH 21-DAY-CYCLE.
     Route: 042
     Dates: start: 20060314
  3. CISPLATIN [Suspect]
     Indication: METASTATIC GASTRIC CANCER
     Dosage: GIVEN IN 250CC OF NACL 0.9 % IN 1 HOUR INFUSION ON DAY ONE OF EACH 21-DAY-CYCLE.
     Route: 042
     Dates: start: 20060314
  4. ACTISKENAN [Suspect]
     Dosage: FREQUENCY AS NEEDED
     Route: 065
  5. DI-ANTALVIC [Concomitant]
  6. PROPOFAN [Concomitant]
  7. SOLUPRED [Concomitant]
  8. SKENAN [Concomitant]
  9. CARDENSIEL [Concomitant]
  10. TRIATEC [Concomitant]
  11. LASIX [Concomitant]
  12. DIGOXIN [Concomitant]

REACTIONS (1)
  - RENAL FAILURE ACUTE [None]
